FAERS Safety Report 12529732 (Version 1)
Quarter: 2016Q3

REPORT INFORMATION
  Report Type: Spontaneous
  Country: BR (occurrence: BR)
  Receive Date: 20160706
  Receipt Date: 20160706
  Transmission Date: 20161109
  Serious: Yes (Other)
  Sender: FDA-Public Use
  Company Number: BR-009507513-1309BRA002239

PATIENT
  Age: 23 Year
  Sex: Female
  Weight: 58 kg

DRUGS (4)
  1. NASONEX [Suspect]
     Active Substance: MOMETASONE FUROATE
     Dosage: 2 PUFFS IN EACH NOSTRIL THRICE DAILY
     Route: 045
  2. NASONEX [Suspect]
     Active Substance: MOMETASONE FUROATE
     Dosage: 2 PUFFS IN EACH NOSTRIL THRICE DAILY
     Route: 045
  3. NASONEX [Suspect]
     Active Substance: MOMETASONE FUROATE
     Dosage: 2 PUFFS IN EACH NOSTRIL THRICE DAILY
     Route: 045
  4. NASONEX [Suspect]
     Active Substance: MOMETASONE FUROATE
     Indication: RHINITIS ALLERGIC
     Dosage: 2 PUFFS IN EACH NOSTRIL THRICE DAILY
     Route: 045
     Dates: start: 1998

REACTIONS (12)
  - Feeling abnormal [Unknown]
  - Product quality issue [Unknown]
  - Depression [Not Recovered/Not Resolved]
  - Tooth disorder [Unknown]
  - Dyspnoea [Recovering/Resolving]
  - Drug ineffective [Unknown]
  - Stress [Unknown]
  - Rhinitis allergic [Recovering/Resolving]
  - Overdose [Unknown]
  - Gastrointestinal disorder [Unknown]
  - Hypertension [Not Recovered/Not Resolved]
  - Intentional product use issue [Unknown]

NARRATIVE: CASE EVENT DATE: 1998
